FAERS Safety Report 17315257 (Version 1)
Quarter: 2020Q1

REPORT INFORMATION
  Report Type: Spontaneous
  Country: US (occurrence: US)
  Receive Date: 20200108
  Receipt Date: 20200108
  Transmission Date: 20200409
  Serious: Yes (Other)
  Sender: FDA-Public Use
  Company Number: None

PATIENT
  Sex: Female
  Weight: 92.53 kg

DRUGS (2)
  1. BUPROPION SR 50MG [Concomitant]
  2. BUPROPION SR 100MG [Suspect]
     Active Substance: BUPROPION HYDROCHLORIDE

REACTIONS (3)
  - Product substitution issue [None]
  - Post-traumatic stress disorder [None]
  - Fibromyalgia [None]
